FAERS Safety Report 18760866 (Version 1)
Quarter: 2021Q1

REPORT INFORMATION
  Report Type: Spontaneous
  Country: US (occurrence: US)
  Receive Date: 20210119
  Receipt Date: 20210119
  Transmission Date: 20210419
  Serious: No
  Sender: FDA-Public Use
  Company Number: US-PFIZER INC-2021033089

PATIENT
  Age: 65 Year
  Sex: Male

DRUGS (1)
  1. INLYTA [Suspect]
     Active Substance: AXITINIB
     Indication: RENAL CELL CARCINOMA
     Dosage: 7 MG, 2X/DAY (EVERY 12 HOURS)
     Route: 048
     Dates: start: 20190801

REACTIONS (4)
  - Dysphonia [Unknown]
  - Diarrhoea [Unknown]
  - Bone pain [Unknown]
  - Myalgia [Unknown]
